FAERS Safety Report 6943586-5 (Version None)
Quarter: 2010Q3

REPORT INFORMATION
  Report Type: 
  Country: None (occurrence: None)
  Receive Date: 20100826
  Receipt Date: 20100817
  Transmission Date: 20110219
  Serious: Yes (Hospitalization, Other)
  Sender: FDA-Public Use
  Company Number: FR-ABBOTT-10P-056-0661236-00

PATIENT
  Sex: Female

DRUGS (3)
  1. CLARITHROMYCIN [Suspect]
     Indication: HELICOBACTER INFECTION
     Dosage: 500MG DAILY DOSE
     Route: 048
     Dates: start: 20100315, end: 20100322
  2. PREVISCAN [Interacting]
     Indication: PRODUCT USED FOR UNKNOWN INDICATION
     Dosage: DEPENDING OF INR
     Route: 048
     Dates: end: 20100325
  3. AMOXICILLIN [Interacting]
     Indication: HELICOBACTER INFECTION
     Route: 048
     Dates: start: 20100315, end: 20100322

REACTIONS (9)
  - ASTHENIA [None]
  - DRUG INTERACTION [None]
  - GASTROINTESTINAL ANGIODYSPLASIA [None]
  - GASTROINTESTINAL DISORDER [None]
  - HAEMOGLOBIN INCREASED [None]
  - INTERNATIONAL NORMALISED RATIO INCREASED [None]
  - OVERDOSE [None]
  - PALLOR [None]
  - RECTAL HAEMORRHAGE [None]
